FAERS Safety Report 8402243-9 (Version None)
Quarter: 2012Q2

REPORT INFORMATION
  Report Type: 
  Country: None (occurrence: None)
  Receive Date: 20120525
  Receipt Date: 20120511
  Transmission Date: 20120825
  Serious: Yes (Hospitalization)
  Sender: FDA-Public Use
  Company Number: WAES 1203USA03620

PATIENT
  Age: 15 Year
  Sex: Female
  Weight: 45.8133 kg

DRUGS (15)
  1. PHOTINIA PYRIFOLIA [Concomitant]
  2. SELENIUM (UNSPECIFIED) [Concomitant]
  3. TURMERIC [Concomitant]
  4. RIDAFOROLIMUS [Suspect]
     Indication: NEOPLASM
     Dosage: 30 MG, DAILY, PO
     Route: 048
     Dates: start: 20120221, end: 20120224
  5. MAXIDEX [Concomitant]
  6. BROCCOLI (=) CARROT [Concomitant]
  7. DECADRON [Suspect]
     Indication: INTRACRANIAL PRESSURE INCREASED
     Dosage: 4 MG, BID, PO
     Route: 048
     Dates: start: 20120326, end: 20120327
  8. RADIANCE [Concomitant]
  9. MORPHINE SULFATE [Concomitant]
  10. LANSOPRAZOLE [Concomitant]
  11. BACLOFEN [Concomitant]
  12. CYCLIZINE [Concomitant]
  13. BLACK CURRANT (+) TEA [Concomitant]
  14. LYCOPENHE [Concomitant]
  15. MANUKA HONEY [Concomitant]

REACTIONS (14)
  - BLOOD SELENIUM INCREASED [None]
  - ASPARTATE AMINOTRANSFERASE INCREASED [None]
  - STOMATITIS [None]
  - HAEMOGLOBIN DECREASED [None]
  - FATIGUE [None]
  - FLUID INTAKE REDUCED [None]
  - ALANINE AMINOTRANSFERASE INCREASED [None]
  - BLOOD PHOSPHORUS DECREASED [None]
  - PARTIAL SEIZURES [None]
  - ORAL HERPES [None]
  - INFECTION [None]
  - PLATELET COUNT DECREASED [None]
  - HYDROCEPHALUS [None]
  - BACTERIAL INFECTION [None]
